FAERS Safety Report 16300658 (Version 2)
Quarter: 2019Q4

REPORT INFORMATION
  Report Type: Spontaneous
  Country: JP (occurrence: JP)
  Receive Date: 20190510
  Receipt Date: 20191114
  Transmission Date: 20200122
  Serious: Yes (Death, Other)
  Sender: FDA-Public Use
  Company Number: JP-ELI_LILLY_AND_COMPANY-JP201905003572

PATIENT
  Age: 81 Year
  Sex: Male

DRUGS (2)
  1. CYRAMZA [Suspect]
     Active Substance: RAMUCIRUMAB
     Indication: ADENOCARCINOMA GASTRIC
     Dosage: UNK
     Route: 041
     Dates: start: 201705, end: 201808
  2. ELENTAL-P [Concomitant]
     Active Substance: AMINO ACIDS\CARBOHYDRATES\MINERALS\SOYBEAN OIL\VITAMINS
     Dosage: 1 DOSAGE FORM
     Dates: start: 201611, end: 201802

REACTIONS (2)
  - Malignant neoplasm progression [Fatal]
  - Cerebellar infarction [Unknown]

NARRATIVE: CASE EVENT DATE: 201808
